FAERS Safety Report 19854103 (Version 2)
Quarter: 2021Q4

REPORT INFORMATION
  Report Type: Spontaneous
  Country: JP (occurrence: JP)
  Receive Date: 20210920
  Receipt Date: 20211117
  Transmission Date: 20220303
  Serious: Yes (Hospitalization, Other)
  Sender: FDA-Public Use
  Company Number: JP-SA-SAC20210916000310

PATIENT
  Age: 70 Year
  Sex: Male
  Weight: 58.9 kg

DRUGS (12)
  1. OXALIPLATIN [Suspect]
     Active Substance: OXALIPLATIN
     Indication: Rectal cancer
     Dosage: UNK, Q3W
     Route: 041
     Dates: start: 20190725, end: 20190725
  2. OXALIPLATIN [Suspect]
     Active Substance: OXALIPLATIN
     Dosage: UNK, Q3W
     Route: 041
     Dates: start: 20200205, end: 20200205
  3. AVASTIN [Suspect]
     Active Substance: BEVACIZUMAB
     Indication: Rectal cancer
     Dosage: UNK, Q3W
     Route: 041
     Dates: start: 20190725, end: 20200205
  4. TS-1 [Suspect]
     Active Substance: GIMERACIL\OTERACIL\TEGAFUR
     Indication: Rectal cancer
     Dosage: UNK UNK, Q3W
     Dates: start: 20190725, end: 20190725
  5. TS-1 [Suspect]
     Active Substance: GIMERACIL\OTERACIL\TEGAFUR
     Dosage: UNK UNK, Q3W
     Dates: start: 20200205, end: 20200205
  6. MAGNESIUM OXIDE [Concomitant]
     Active Substance: MAGNESIUM OXIDE
     Dosage: UNK
  7. NIFEDIPINE [Concomitant]
     Active Substance: NIFEDIPINE
     Dosage: UNK(SLOW RELEASE TABLET)
  8. AMLODIPINE BESILATE;IRBESARTAN [Concomitant]
     Dosage: UNK
  9. EZETIMIBE [Concomitant]
     Active Substance: EZETIMIBE
     Dosage: UNK
  10. PANTOTHENIC ACID [Concomitant]
     Active Substance: PANTOTHENIC ACID
  11. CARVEDILOL [Concomitant]
     Active Substance: CARVEDILOL
  12. CANAGLIFLOZIN [Concomitant]
     Active Substance: CANAGLIFLOZIN

REACTIONS (11)
  - Fournier^s gangrene [Recovering/Resolving]
  - Chills [Recovering/Resolving]
  - Musculoskeletal pain [Recovering/Resolving]
  - Large intestine perforation [Recovering/Resolving]
  - Orchitis [Recovering/Resolving]
  - Subcutaneous emphysema [Recovering/Resolving]
  - Pyrexia [Recovering/Resolving]
  - Hypoaesthesia [Recovering/Resolving]
  - Scrotal swelling [Recovering/Resolving]
  - Perineal disorder [Recovering/Resolving]
  - Therapy partial responder [Unknown]

NARRATIVE: CASE EVENT DATE: 20200205
